FAERS Safety Report 8027298-5 (Version None)
Quarter: 2012Q1

REPORT INFORMATION
  Report Type: 
  Country: None (occurrence: None)
  Receive Date: 20120106
  Receipt Date: 20111227
  Transmission Date: 20120608
  Serious: Yes (Other)
  Sender: FDA-Public Use
  Company Number: US-RB-031966-11

PATIENT
  Age: 61 Year
  Sex: Male

DRUGS (3)
  1. MUCINEX [Suspect]
     Indication: PRODUCT USED FOR UNKNOWN INDICATION
     Route: 048
     Dates: start: 20111219
  2. METFORMIN HCL [Concomitant]
     Indication: BLOOD GLUCOSE ABNORMAL
  3. ACTOS [Concomitant]
     Indication: BLOOD GLUCOSE INCREASED

REACTIONS (3)
  - BLOOD GLUCOSE INCREASED [None]
  - BLOOD PRESSURE INCREASED [None]
  - HEART RATE INCREASED [None]
